FAERS Safety Report 8574067-3 (Version None)
Quarter: 2012Q3

REPORT INFORMATION
  Report Type: 
  Country: None (occurrence: None)
  Receive Date: 20120806
  Receipt Date: 20120727
  Transmission Date: 20120928
  Serious: Yes (Disabling, Other)
  Sender: FDA-Public Use
  Company Number: CHPA2012GB016651

PATIENT
  Sex: Female

DRUGS (3)
  1. OMEPRAZOLE [Concomitant]
     Indication: GASTRITIS
  2. VOLTAROL EMULGEL P [Suspect]
     Indication: INFLAMMATION
     Dosage: APPLIED NO MORE THAN 6 TIMES
     Route: 061
     Dates: start: 20120714, end: 20120717
  3. NAPROXEN [Suspect]
     Indication: INFLAMMATION
     Dosage: 2 DF, UNK
     Dates: start: 20120701, end: 20120714

REACTIONS (12)
  - PAIN [None]
  - ABDOMINAL PAIN UPPER [None]
  - DRY MOUTH [None]
  - MOVEMENT DISORDER [None]
  - SALMONELLOSIS [None]
  - INSOMNIA [None]
  - GAIT DISTURBANCE [None]
  - DIARRHOEA [None]
  - BLISTER [None]
  - FEELING HOT [None]
  - SWELLING [None]
  - RASH [None]
